FAERS Safety Report 19572685 (Version 3)
Quarter: 2021Q3

REPORT INFORMATION
  Report Type: Spontaneous
  Country: US (occurrence: US)
  Receive Date: 20210716
  Receipt Date: 20210804
  Transmission Date: 20211014
  Serious: Yes (Hospitalization, Other)
  Sender: FDA-Public Use
  Company Number: US-ELI_LILLY_AND_COMPANY-US202107005730

PATIENT
  Age: 77 Year
  Sex: Female

DRUGS (7)
  1. ASPIRIN [ACETYLSALICYLIC ACID] [Concomitant]
     Active Substance: ASPIRIN
     Indication: PRODUCT USED FOR UNKNOWN INDICATION
  2. FORTEO [Suspect]
     Active Substance: TERIPARATIDE
     Indication: PRODUCT USED FOR UNKNOWN INDICATION
     Dosage: UNK UNK, UNKNOWN
     Route: 065
     Dates: start: 2007, end: 2008
  3. VITAMIN A [RETINOL] [Concomitant]
     Active Substance: RETINOL
     Indication: PRODUCT USED FOR UNKNOWN INDICATION
  4. MOTRIN [Concomitant]
     Active Substance: IBUPROFEN
     Indication: OSTEOPOROSIS
  5. CALCIUM [Concomitant]
     Active Substance: CALCIUM
     Indication: PRODUCT USED FOR UNKNOWN INDICATION
  6. VITAMIN D [VITAMIN D NOS] [Concomitant]
     Active Substance: VITAMIN D NOS
     Indication: PRODUCT USED FOR UNKNOWN INDICATION
     Dosage: 5000 U, WEEKLY (1/W)
  7. TRETINOIN. [Concomitant]
     Active Substance: TRETINOIN
     Indication: PRODUCT USED FOR UNKNOWN INDICATION

REACTIONS (40)
  - Pain [Unknown]
  - Pollakiuria [Unknown]
  - Pigmentation disorder [Unknown]
  - Fall [Unknown]
  - Depression [Unknown]
  - Fall [Unknown]
  - Memory impairment [Unknown]
  - Blood cholesterol increased [Not Recovered/Not Resolved]
  - Product storage error [Unknown]
  - Gait inability [Unknown]
  - Hip fracture [Unknown]
  - Actinic keratosis [Unknown]
  - Incorrect product administration duration [Unknown]
  - Fall [Unknown]
  - Femur fracture [Unknown]
  - Oropharyngeal discomfort [Unknown]
  - Cardiac disorder [Unknown]
  - Bone density decreased [Unknown]
  - Joint injury [Unknown]
  - Aortic stenosis [Unknown]
  - Sneezing [Unknown]
  - Pain in extremity [Unknown]
  - Back injury [Unknown]
  - Confusional state [Unknown]
  - Vomiting [Unknown]
  - Eyelid disorder [Not Recovered/Not Resolved]
  - Aortic valve calcification [Unknown]
  - Wrist fracture [Unknown]
  - Back pain [Unknown]
  - Vitamin D decreased [Unknown]
  - Osteoporosis [Unknown]
  - Skin injury [Unknown]
  - Muscle disorder [Unknown]
  - Hypovitaminosis [Unknown]
  - Abdominal pain [Unknown]
  - Fungal infection [Unknown]
  - Psoriasis [Unknown]
  - Musculoskeletal disorder [Unknown]
  - Arthralgia [Unknown]
  - Fall [Not Recovered/Not Resolved]

NARRATIVE: CASE EVENT DATE: 2007
